FAERS Safety Report 4957466-8 (Version None)
Quarter: 2006Q1

REPORT INFORMATION
  Report Type: 
  Country: None (occurrence: None)
  Receive Date: 20060330
  Receipt Date: 20060322
  Transmission Date: 20060701
  Serious: Yes (Other)
  Sender: FDA-Public Use
  Company Number: ES-JNJFOC-20060202638

PATIENT
  Age: 34 Year
  Sex: Female

DRUGS (7)
  1. REMICADE [Suspect]
     Dosage: INFUSION RATE WAS DECREASED FROM 40ML/H TO 20ML/H TO 10ML/H.
     Route: 042
  2. REMICADE [Suspect]
     Indication: CROHN'S DISEASE
     Route: 042
  3. CORTICOIDS [Concomitant]
  4. POLARAMINE [Concomitant]
     Route: 065
  5. POLARAMINE [Concomitant]
     Route: 065
  6. URBASON [Concomitant]
     Route: 040
  7. URBASON [Concomitant]
     Route: 040

REACTIONS (6)
  - CHEST PAIN [None]
  - DIZZINESS [None]
  - HYPERSENSITIVITY [None]
  - INFUSION RELATED REACTION [None]
  - VISION BLURRED [None]
  - VOMITING [None]
